FAERS Safety Report 8509767-4 (Version None)
Quarter: 2012Q3

REPORT INFORMATION
  Report Type: 
  Country: None (occurrence: None)
  Receive Date: 20120703
  Receipt Date: 20120619
  Transmission Date: 20120928
  Serious: Yes (Other)
  Sender: FDA-Public Use
  Company Number: MC201200365

PATIENT

DRUGS (1)
  1. CLEVIPREX (CLEVIDIPINE BUTYRATE) EMULSION FOR INFUSION, 0.5MG/ML [Suspect]
     Indication: BLOOD PRESSURE INCREASED
     Dosage: WITH PUMP

REACTIONS (4)
  - INCORRECT DOSE ADMINISTERED BY DEVICE [None]
  - HYPERSENSITIVITY [None]
  - BLOOD PRESSURE DECREASED [None]
  - CARDIO-RESPIRATORY ARREST [None]
